FAERS Safety Report 25649935 (Version 1)
Quarter: 2025Q3

REPORT INFORMATION
  Report Type: Spontaneous
  Country: EU (occurrence: EU)
  Receive Date: 20250806
  Receipt Date: 20250806
  Transmission Date: 20251021
  Serious: Yes (Death, Hospitalization, Other)
  Sender: DAIICHI
  Company Number: None

PATIENT
  Age: 55 Year
  Sex: Female

DRUGS (5)
  1. TRASTUZUMAB DERUXTECAN [Suspect]
     Active Substance: TRASTUZUMAB DERUXTECAN
     Indication: Breast cancer stage IV
     Dosage: 5.4 MG/KG, ONCE EVERY 3 WK (EVERY 21 DAYS)
     Route: 042
     Dates: start: 20250422, end: 20250422
  2. TRASTUZUMAB DERUXTECAN [Suspect]
     Active Substance: TRASTUZUMAB DERUXTECAN
     Dosage: UNK, ONCE EVERY 3 WK
     Route: 042
  3. TRASTUZUMAB DERUXTECAN [Suspect]
     Active Substance: TRASTUZUMAB DERUXTECAN
     Dosage: UNK, ONCE EVERY 3 WK
     Route: 042
  4. TRASTUZUMAB DERUXTECAN [Suspect]
     Active Substance: TRASTUZUMAB DERUXTECAN
     Dosage: LAST CYCLE DOSE REDUCED BY 20%, ONCE EVERY 3 WK
     Route: 042
     Dates: start: 20250626, end: 20250626
  5. EUTHYROX [Concomitant]
     Active Substance: LEVOTHYROXINE SODIUM
     Indication: Hyperthyroidism
     Route: 065

REACTIONS (3)
  - Cerebral amyloid angiopathy [Fatal]
  - Progressive multifocal leukoencephalopathy [Fatal]
  - Melaena [Not Recovered/Not Resolved]

NARRATIVE: CASE EVENT DATE: 20250702
